FAERS Safety Report 5402631-9 (Version None)
Quarter: 2007Q3

REPORT INFORMATION
  Report Type: 
  Country: None (occurrence: None)
  Receive Date: 20070730
  Receipt Date: 20070730
  Transmission Date: 20080115
  Serious: Yes (Hospitalization)
  Sender: FDA-Public Use
  Company Number: None

PATIENT
  Age: 47 Year
  Sex: Female
  Weight: 86.1834 kg

DRUGS (1)
  1. ITRACONAZOLE [Suspect]
     Indication: ONYCHOMYCOSIS
     Dates: start: 20060504, end: 20060508

REACTIONS (1)
  - DRUG HYPERSENSITIVITY [None]
